FAERS Safety Report 13636013 (Version 1)
Quarter: 2017Q2

REPORT INFORMATION
  Report Type: Spontaneous
  Country: US (occurrence: US)
  Receive Date: 20170531
  Receipt Date: 20170531
  Transmission Date: 20170830
  Serious: No
  Sender: FDA-Public Use
  Company Number: US-ASTELLAS-1770580

PATIENT
  Sex: Female

DRUGS (4)
  1. PRADAXA [Concomitant]
     Active Substance: DABIGATRAN ETEXILATE MESYLATE
  2. TARCEVA [Suspect]
     Active Substance: ERLOTINIB HYDROCHLORIDE
     Indication: LUNG NEOPLASM MALIGNANT
     Route: 048
     Dates: start: 20160323
  3. ALTIAZEM [Concomitant]
     Active Substance: DILTIAZEM HYDROCHLORIDE
  4. OXYCONTIN [Concomitant]
     Active Substance: OXYCODONE HYDROCHLORIDE

REACTIONS (6)
  - Ocular hyperaemia [Unknown]
  - Acne [Unknown]
  - Rash [Unknown]
  - Alopecia [Unknown]
  - Dermatitis acneiform [Unknown]
  - Eye swelling [Unknown]
